FAERS Safety Report 4330121-3 (Version None)
Quarter: 2004Q1

REPORT INFORMATION
  Report Type: 
  Country: None (occurrence: None)
  Receive Date: 20040329
  Receipt Date: 20040129
  Transmission Date: 20041129
  Serious: No
  Sender: FDA-Public Use
  Company Number: 04P-163-0248877-00

PATIENT
  Age: 61 Year
  Sex: Female
  Weight: 90.7194 kg

DRUGS (8)
  1. HUMIRA [Suspect]
     Indication: RHEUMATOID ARTHRITIS
     Dosage: 40 MG, 1 IN 2 WK, SUBCUTANEOUS
     Route: 058
     Dates: start: 20020101
  2. PREDNISONE [Concomitant]
  3. ZOLPIDEM TARTRATE [Concomitant]
  4. ESTROGENS CONJUGATED [Concomitant]
  5. CYCLOBENZAPRINE HCL [Concomitant]
  6. VICODIN [Concomitant]
  7. OXYCODONE HCL [Concomitant]
  8. SALSALATE [Concomitant]

REACTIONS (2)
  - FATIGUE [None]
  - PARAESTHESIA [None]
